FAERS Safety Report 12930200 (Version 1)
Quarter: 2016Q4

REPORT INFORMATION
  Report Type: Spontaneous
  Country: US (occurrence: US)
  Receive Date: 20161111
  Receipt Date: 20161111
  Transmission Date: 20170207
  Serious: No
  Sender: FDA-Public Use
  Company Number: None

PATIENT
  Age: 62 Year
  Sex: Female
  Weight: 60 kg

DRUGS (11)
  1. ESTRACE [Concomitant]
     Active Substance: ESTRADIOL
  2. METOPROLOL TARTRATE. [Concomitant]
     Active Substance: METOPROLOL TARTRATE
  3. PREVACID [Concomitant]
     Active Substance: LANSOPRAZOLE
  4. ZOFRAN [Concomitant]
     Active Substance: ONDANSETRON HYDROCHLORIDE
  5. MULTIVITAMIN [Concomitant]
     Active Substance: VITAMINS
  6. 5 FU CHEMO [Concomitant]
  7. OXALIPLATIN. [Suspect]
     Active Substance: OXALIPLATIN
     Indication: PANCREATIC CARCINOMA
     Dosage: ?          OTHER FREQUENCY:ONCE;?
     Route: 042
  8. COMPAZINE [Concomitant]
     Active Substance: PROCHLORPERAZINE MALEATE
  9. EMLA [Concomitant]
     Active Substance: LIDOCAINE\PRILOCAINE
  10. FERROUS SULFATE (ELEMENTAL IRON) [Concomitant]
  11. OXALIPLATIN. [Suspect]
     Active Substance: OXALIPLATIN
     Indication: PANCREATIC CARCINOMA
     Dosage: ?          OTHER FREQUENCY:ONCE;?
     Route: 042

REACTIONS (3)
  - Pruritus [None]
  - Infusion related reaction [None]
  - Rash [None]

NARRATIVE: CASE EVENT DATE: 20161101
